FAERS Safety Report 9886456 (Version 2)
Quarter: 2014Q1

REPORT INFORMATION
  Report Type: Spontaneous
  Country: US (occurrence: US)
  Receive Date: 20140210
  Receipt Date: 20140225
  Transmission Date: 20141002
  Serious: Yes (Other)
  Sender: FDA-Public Use
  Company Number: US-GILEAD-2014-0094044

PATIENT
  Age: 39 Year
  Sex: Female

DRUGS (8)
  1. LETAIRIS [Suspect]
     Indication: PULMONARY HYPERTENSION
     Dosage: 5 MG, UNK
     Route: 048
     Dates: start: 20110728
  2. LETAIRIS [Suspect]
     Indication: CONNECTIVE TISSUE DISORDER
  3. TYVASO [Concomitant]
  4. ADCIRCA [Concomitant]
     Dosage: 20 MG, UNK
  5. ALDACTONE                          /00006201/ [Concomitant]
     Dosage: 25 MG, UNK
  6. COUMADIN                           /00014802/ [Concomitant]
     Dosage: 2 MG, UNK
  7. LASIX                              /00032601/ [Concomitant]
     Dosage: 20 MG, UNK
  8. PREDNISONE [Concomitant]
     Dosage: 10 MG, UNK

REACTIONS (2)
  - Weight increased [Not Recovered/Not Resolved]
  - Fluid retention [Not Recovered/Not Resolved]
